FAERS Safety Report 11072775 (Version 2)
Quarter: 2018Q4

REPORT INFORMATION
  Report Type: Spontaneous
  Country: DE (occurrence: DE)
  Receive Date: 20150428
  Receipt Date: 20181015
  Transmission Date: 20190204
  Serious: Yes (Other)
  Sender: FDA-Public Use
  Company Number: DE-CIPLA LTD.-2015DE03390

PATIENT

DRUGS (4)
  1. PACLITAXEL. [Suspect]
     Active Substance: PACLITAXEL
     Indication: METASTASES TO LIVER
  2. PACLITAXEL. [Suspect]
     Active Substance: PACLITAXEL
     Indication: INVASIVE DUCTAL BREAST CARCINOMA
     Dosage: 200 MG/M2, UNK
     Route: 065
     Dates: start: 20130318
  3. GEMCITABINE [Suspect]
     Active Substance: GEMCITABINE\GEMCITABINE HYDROCHLORIDE
     Indication: METASTASES TO LIVER
     Dosage: 1000 MG/M2, EVERY 3 WEEKS
     Route: 065
     Dates: start: 20130422, end: 20130715
  4. GEMCITABINE [Suspect]
     Active Substance: GEMCITABINE\GEMCITABINE HYDROCHLORIDE
     Indication: INVASIVE DUCTAL BREAST CARCINOMA
     Dosage: 1000 MG/M2, UNK
     Route: 065
     Dates: start: 20130318

REACTIONS (5)
  - Therapy non-responder [Unknown]
  - Quality of life decreased [Unknown]
  - Mucosal inflammation [Recovered/Resolved]
  - Odynophagia [Recovered/Resolved]
  - Malignant neoplasm progression [Recovering/Resolving]

NARRATIVE: CASE EVENT DATE: 20130328
